FAERS Safety Report 12990881 (Version 1)
Quarter: 2016Q4

REPORT INFORMATION
  Report Type: Spontaneous
  Country: DE (occurrence: DE)
  Receive Date: 20161201
  Receipt Date: 20161201
  Transmission Date: 20170207
  Serious: Yes (Other)
  Sender: FDA-Public Use
  Company Number: DE-TEVA-713824GER

PATIENT
  Age: 56 Year
  Sex: Female
  Weight: 108 kg

DRUGS (2)
  1. CIPROFLOXACIN. [Suspect]
     Active Substance: CIPROFLOXACIN
     Indication: SEPSIS
     Dosage: 400 MG/D (+ 4.5 G/D)
     Route: 042
     Dates: start: 20150808
  2. TAZOBAC [Suspect]
     Active Substance: PIPERACILLIN SODIUM\TAZOBACTAM SODIUM
     Indication: SEPSIS
     Dosage: 400 MG/D (+ 4.5 G/D)
     Route: 042
     Dates: start: 20150808

REACTIONS (16)
  - Vomiting [Recovered/Resolved]
  - Tendon pain [Unknown]
  - Aphasia [Recovered/Resolved]
  - Diarrhoea [Recovered/Resolved]
  - Hallucination [Recovered/Resolved]
  - Urinary incontinence [Unknown]
  - Disturbance in attention [Unknown]
  - Anorectal discomfort [Recovered/Resolved]
  - Myalgia [Unknown]
  - Abdominal discomfort [Recovered/Resolved]
  - Gait disturbance [Unknown]
  - Fatigue [Unknown]
  - Pain [Unknown]
  - Formication [Unknown]
  - Alopecia [Unknown]
  - Abdominal pain [Recovered/Resolved]

NARRATIVE: CASE EVENT DATE: 201508
